FAERS Safety Report 14645713 (Version 2)
Quarter: 2018Q2

REPORT INFORMATION
  Report Type: Spontaneous
  Country: US (occurrence: US)
  Receive Date: 20180316
  Receipt Date: 20180423
  Transmission Date: 20180711
  Serious: Yes (Other)
  Sender: FDA-Public Use
  Company Number: US-CIPLA LTD.-2018US11651

PATIENT

DRUGS (7)
  1. RITONAVIR. [Suspect]
     Active Substance: RITONAVIR
     Indication: HIV INFECTION
     Dosage: UNK
     Route: 065
  2. FORMOTEROL W/MOMETASONE [Interacting]
     Active Substance: FORMOTEROL\MOMETASONE
     Indication: CHONDROCALCINOSIS PYROPHOSPHATE
     Dosage: UNK
     Route: 065
  3. TRIAMCINOLONE ACETONIDE. [Interacting]
     Active Substance: TRIAMCINOLONE ACETONIDE
     Indication: CHONDROCALCINOSIS PYROPHOSPHATE
     Dosage: 120 MG, UNK
     Route: 014
  4. RALTEGRAVIR. [Concomitant]
     Active Substance: RALTEGRAVIR
     Indication: HIV INFECTION
     Dosage: UNK
     Route: 065
  5. BECLOMETHASONE                     /00212601/ [Interacting]
     Active Substance: BECLOMETHASONE
     Indication: CHONDROCALCINOSIS PYROPHOSPHATE
     Dosage: UNK
     Route: 045
  6. ETRAVIRINE [Concomitant]
     Active Substance: ETRAVIRINE
     Indication: HIV INFECTION
     Dosage: UNK
     Route: 065
  7. DARUNAVIR [Concomitant]
     Active Substance: DARUNAVIR
     Indication: HIV INFECTION
     Dosage: UNK
     Route: 065

REACTIONS (2)
  - Drug interaction [Unknown]
  - Cushing^s syndrome [Recovered/Resolved]
